FAERS Safety Report 8448339-7 (Version None)
Quarter: 2012Q2

REPORT INFORMATION
  Report Type: 
  Country: None (occurrence: None)
  Receive Date: 20120619
  Receipt Date: 20120604
  Transmission Date: 20120825
  Serious: No
  Sender: FDA-Public Use
  Company Number: US-ASTRAZENECA-2012SE37291

PATIENT
  Sex: Female

DRUGS (1)
  1. CRESTOR [Suspect]
     Dosage: HALF TABLET EVERY OTHER DAY
     Route: 048

REACTIONS (3)
  - HEPATIC STEATOSIS [None]
  - OFF LABEL USE [None]
  - INTENTIONAL DRUG MISUSE [None]
